FAERS Safety Report 17460701 (Version 2)
Quarter: 2021Q1

REPORT INFORMATION
  Report Type: Spontaneous
  Country: JP (occurrence: JP)
  Receive Date: 20200226
  Receipt Date: 20210209
  Transmission Date: 20210419
  Serious: Yes (Life-Threatening, Hospitalization, Other)
  Sender: FDA-Public Use
  Company Number: JP-PFIZER INC-2020011534

PATIENT
  Age: 23 Year
  Sex: Male
  Weight: 93 kg

DRUGS (12)
  1. E KEPPRA [Suspect]
     Active Substance: LEVETIRACETAM
     Indication: SEIZURE
     Dosage: UNK, 2X/DAY
     Route: 048
     Dates: start: 20191213, end: 20191229
  2. VIMPAT [Suspect]
     Active Substance: LACOSAMIDE
     Indication: SEIZURE
     Dosage: UNK, 2X/DAY
     Route: 048
     Dates: start: 20191221, end: 20200101
  3. TAZOPIPE [Concomitant]
     Active Substance: PIPERACILLIN SODIUM\TAZOBACTAM SODIUM
     Indication: PNEUMONIA
     Dosage: 4.5 G, UNK (4.5 GM,6 HR)
     Route: 042
     Dates: start: 20191225, end: 20200104
  4. DIPRIVAN [Concomitant]
     Active Substance: PROPOFOL
     Indication: SEIZURE
     Dosage: UNK
     Route: 042
     Dates: start: 20191213, end: 20200114
  5. SULBACILLIN [Concomitant]
     Active Substance: AMPICILLIN SODIUM\SULBACTAM SODIUM
     Indication: PNEUMONIA
     Dosage: 3 G, UNK (3 GM,6 HR)
     Route: 042
     Dates: start: 20191216, end: 20191225
  6. MIDAZOLAM. [Concomitant]
     Active Substance: MIDAZOLAM
     Indication: SEIZURE
     Dosage: UNK
     Route: 042
     Dates: start: 20191213, end: 20200120
  7. FENTANYL. [Concomitant]
     Active Substance: FENTANYL
     Indication: ANALGESIC THERAPY
     Dosage: UNK
     Route: 042
     Dates: start: 20191213, end: 20200118
  8. ACICLOVIR [Concomitant]
     Active Substance: ACYCLOVIR
     Indication: PROPHYLAXIS
     Dosage: 200 MG, 1X/DAY
     Dates: start: 20191227, end: 20200103
  9. NOBELBAR [Suspect]
     Active Substance: PHENOBARBITAL SODIUM
     Indication: SEIZURE
     Dosage: 500 TO 1500 MG, 1X/DAY (DAILY)
     Route: 042
     Dates: start: 20191225, end: 20200104
  10. E KEPPRA [Suspect]
     Active Substance: LEVETIRACETAM
     Dosage: UNK, 2X/DAY
     Route: 048
     Dates: start: 20191213, end: 20191229
  11. FOSTOIN [Suspect]
     Active Substance: FOSPHENYTOIN SODIUM
     Indication: SEIZURE
     Dosage: 750 MG, 1X/DAY
     Route: 042
     Dates: start: 20191220, end: 20191223
  12. CEFTAZIDIME. [Concomitant]
     Active Substance: CEFTAZIDIME
     Indication: PNEUMONIA
     Dosage: 2 G, UNK (2 GM,8 HR)
     Route: 042
     Dates: start: 20200106, end: 20200116

REACTIONS (3)
  - Drug reaction with eosinophilia and systemic symptoms [Recovering/Resolving]
  - Pyrexia [Recovering/Resolving]
  - Liver disorder [Recovering/Resolving]

NARRATIVE: CASE EVENT DATE: 20200103
